FAERS Safety Report 5732588-2 (Version None)
Quarter: 2008Q2

REPORT INFORMATION
  Report Type: 
  Country: None (occurrence: None)
  Receive Date: 20080507
  Receipt Date: 20080428
  Transmission Date: 20081010
  Serious: Yes (Hospitalization)
  Sender: FDA-Public Use
  Company Number: 08US001067

PATIENT
  Age: 58 Year
  Sex: Female

DRUGS (2)
  1. LITHIUM CARBONATE [Suspect]
     Indication: SCHIZOAFFECTIVE DISORDER
     Dosage: 300 MG, TID
     Dates: start: 19880101
  2. RISPERIDONE [Concomitant]

REACTIONS (17)
  - BLOOD CALCITONIN INCREASED [None]
  - CALCIUM IONISED INCREASED [None]
  - CONFUSIONAL STATE [None]
  - DELIRIUM [None]
  - DELUSION [None]
  - DELUSION OF GRANDEUR [None]
  - DISORIENTATION [None]
  - FLIGHT OF IDEAS [None]
  - HALLUCINATION, AUDITORY [None]
  - HYPERCALCAEMIA [None]
  - HYPERCALCIURIA [None]
  - HYPERPARATHYROIDISM [None]
  - IRRITABILITY [None]
  - MANIA [None]
  - MEMORY IMPAIRMENT [None]
  - PERSECUTORY DELUSION [None]
  - PSYCHOTIC DISORDER [None]
